FAERS Safety Report 8388963-3 (Version None)
Quarter: 2012Q2

REPORT INFORMATION
  Report Type: 
  Country: None (occurrence: None)
  Receive Date: 20120528
  Receipt Date: 20120516
  Transmission Date: 20120825
  Serious: Yes (Hospitalization)
  Sender: FDA-Public Use
  Company Number: ZA-BRISTOL-MYERS SQUIBB COMPANY-16623928

PATIENT
  Age: 34 Year
  Sex: Male

DRUGS (7)
  1. ISONIAZID [Concomitant]
     Indication: PULMONARY TUBERCULOSIS
  2. ETHAMBUTOL HYDROCHLORIDE [Concomitant]
     Indication: PULMONARY TUBERCULOSIS
  3. PYRAZINAMIDE [Concomitant]
     Indication: PULMONARY TUBERCULOSIS
  4. STAVUDINE [Suspect]
     Indication: HIV INFECTION
     Route: 065
  5. LAMIVUDINE [Suspect]
     Indication: HIV INFECTION
     Route: 065
  6. EFAVIRENZ [Suspect]
     Indication: HIV INFECTION
     Route: 048
  7. RIFAMPIN [Concomitant]
     Indication: PULMONARY TUBERCULOSIS

REACTIONS (2)
  - CARDIAC FAILURE ACUTE [None]
  - CARDIOGENIC SHOCK [None]
